FAERS Safety Report 26009955 (Version 1)
Quarter: 2025Q4

REPORT INFORMATION
  Report Type: Spontaneous
  Country: CN (occurrence: CN)
  Receive Date: 20251107
  Receipt Date: 20251107
  Transmission Date: 20260117
  Serious: Yes (Hospitalization)
  Sender: DR REDDYS
  Company Number: None

PATIENT
  Age: 58 Year
  Sex: Male
  Weight: 77.0 kg

DRUGS (1)
  1. CLOPIDOGREL BISULFATE [Suspect]
     Active Substance: CLOPIDOGREL BISULFATE
     Indication: Thrombosis
     Dosage: 75MG,QD
     Route: 048
     Dates: start: 20250918, end: 20250919

REACTIONS (1)
  - Blood thrombin abnormal [Recovering/Resolving]

NARRATIVE: CASE EVENT DATE: 20250919
